FAERS Safety Report 16141512 (Version 1)
Quarter: 2019Q2

REPORT INFORMATION
  Report Type: Spontaneous
  Country: US (occurrence: US)
  Receive Date: 20190331
  Receipt Date: 20190331
  Transmission Date: 20190711
  Serious: Yes (Other)
  Sender: FDA-Public Use
  Company Number: None

PATIENT
  Age: 30 Year
  Sex: Female
  Weight: 70.65 kg

DRUGS (1)
  1. IBUPROFEN TABLETS 200 MG PAIN RELIEVER/FEVER REDUCER [Suspect]
     Active Substance: IBUPROFEN
     Indication: HEADACHE
     Dosage: ?          QUANTITY:1 TABLET(S);?
     Route: 048
     Dates: start: 20190313, end: 20190329

REACTIONS (4)
  - Vomiting [None]
  - Product complaint [None]
  - Malaise [None]
  - Diarrhoea [None]

NARRATIVE: CASE EVENT DATE: 20190329
